FAERS Safety Report 6109125-6 (Version None)
Quarter: 2009Q1

REPORT INFORMATION
  Report Type: 
  Country: None (occurrence: None)
  Receive Date: 20090309
  Receipt Date: 20090309
  Transmission Date: 20090719
  Serious: Yes (Death)
  Sender: FDA-Public Use
  Company Number: None

PATIENT
  Age: 77 Year
  Sex: Female
  Weight: 63.5036 kg

DRUGS (1)
  1. INDOMETHACIN [Suspect]
     Indication: GOUT
     Dosage: 2 CAPSULES 3 TIMES PER DAY
     Dates: start: 20071203

REACTIONS (7)
  - ABDOMINAL DISCOMFORT [None]
  - ABNORMAL BEHAVIOUR [None]
  - BLOOD POTASSIUM INCREASED [None]
  - CARDIO-RESPIRATORY ARREST [None]
  - CORONARY ARTERY OCCLUSION [None]
  - LOSS OF CONSCIOUSNESS [None]
  - RENAL FAILURE [None]
